FAERS Safety Report 10169824 (Version 1)
Quarter: 2014Q2

REPORT INFORMATION
  Report Type: Spontaneous
  Country: FR (occurrence: FR)
  Receive Date: 20140513
  Receipt Date: 20140513
  Transmission Date: 20141212
  Serious: Yes (Hospitalization)
  Sender: FDA-Public Use
  Company Number: FR-PFIZER INC-2014130074

PATIENT
  Age: 49 Year
  Sex: Female

DRUGS (8)
  1. INIPOMP [Suspect]
     Dosage: 20 MG, 1X/DAY
     Route: 048
     Dates: start: 20140304, end: 20140310
  2. TAMSULOSIN HYDROCHLORIDE [Suspect]
     Dosage: 0.4 MG, 1X/DAY
     Route: 048
     Dates: start: 20140304, end: 20140310
  3. KETUM [Suspect]
     Indication: PAIN
     Dosage: 100 MG, 1X/DAY
     Route: 048
     Dates: start: 20140304, end: 20140310
  4. XANAX [Concomitant]
  5. NOCTAMIDE [Concomitant]
  6. SEROPRAM [Concomitant]
  7. APAROXAL [Concomitant]
  8. IBUPROFEN [Concomitant]

REACTIONS (1)
  - Drug reaction with eosinophilia and systemic symptoms [Unknown]
